FAERS Safety Report 8021539-6 (Version None)
Quarter: 2011Q4

REPORT INFORMATION
  Report Type: 
  Country: None (occurrence: None)
  Receive Date: 20111230
  Receipt Date: 20111230
  Transmission Date: 20120403
  Serious: Yes (Hospitalization)
  Sender: FDA-Public Use
  Company Number: None

PATIENT
  Sex: Female

DRUGS (1)
  1. PROCRIT [Suspect]
     Indication: ANAEMIA
     Dosage: 20,000 U Q2WEEKS SUB-Q
     Route: 058
     Dates: start: 20110801, end: 20111123

REACTIONS (4)
  - ANGIOEDEMA [None]
  - OEDEMA PERIPHERAL [None]
  - EYELID OEDEMA [None]
  - DYSPNOEA [None]
